FAERS Safety Report 8714949 (Version 4)
Quarter: 2020Q3

REPORT INFORMATION
  Report Type: Spontaneous
  Country: BR (occurrence: BR)
  Receive Date: 20120809
  Receipt Date: 20200813
  Transmission Date: 20201103
  Serious: Yes (Other)
  Sender: FDA-Public Use
  Company Number: BR-BIOMARINP-002800

PATIENT
  Age: 14 Year
  Sex: Male

DRUGS (1)
  1. NAGLAZYME [Suspect]
     Active Substance: GALSULFASE
     Indication: MUCOPOLYSACCHARIDOSIS VI
     Dosage: UNK UNK, QW
     Route: 042
     Dates: start: 20100226

REACTIONS (2)
  - Visual impairment [Recovering/Resolving]
  - Corneal opacity [Unknown]
